FAERS Safety Report 11390473 (Version 1)
Quarter: 2015Q3

REPORT INFORMATION
  Report Type: Spontaneous
  Country: US (occurrence: None)
  Receive Date: 20150814
  Receipt Date: 20150814
  Transmission Date: 20151125
  Serious: No
  Sender: FDA-Public Use
  Company Number: None

PATIENT
  Age: 60 Year
  Sex: Male
  Weight: 111.13 kg

DRUGS (1)
  1. SUTENT [Suspect]
     Active Substance: SUNITINIB MALATE
     Indication: NEOPLASM MALIGNANT
     Dosage: 3
     Route: 048

REACTIONS (3)
  - Fatigue [None]
  - Diarrhoea [None]
  - Dysgeusia [None]

NARRATIVE: CASE EVENT DATE: 20150813
